FAERS Safety Report 13551705 (Version 15)
Quarter: 2017Q4

REPORT INFORMATION
  Report Type: Spontaneous
  Country: NL (occurrence: NL)
  Receive Date: 20170516
  Receipt Date: 20171030
  Transmission Date: 20180320
  Serious: Yes (Other)
  Sender: FDA-Public Use
  Company Number: NL-BRISTOL-MYERS SQUIBB COMPANY-BMS-2017-042291

PATIENT
  Age: 51 Year
  Sex: Male
  Weight: 90 kg

DRUGS (4)
  1. ABILIFY [Suspect]
     Active Substance: ARIPIPRAZOLE
     Indication: PSYCHOTIC DISORDER
     Dosage: 15 MG, QD
     Route: 048
     Dates: start: 19960206, end: 20170505
  2. ANTAGEL                            /00002901/ [Concomitant]
     Indication: PRODUCT USED FOR UNKNOWN INDICATION
     Route: 065
  3. LIDOCAINE. [Concomitant]
     Active Substance: LIDOCAINE
     Indication: PRODUCT USED FOR UNKNOWN INDICATION
     Dosage: UNK UNK, 3 TIMES/WK
     Route: 065
  4. ABILIFY [Suspect]
     Active Substance: ARIPIPRAZOLE
     Indication: BRAIN CONTUSION
     Route: 065

REACTIONS (9)
  - Product use in unapproved indication [Unknown]
  - Gamma-glutamyltransferase abnormal [Unknown]
  - Liver disorder [Unknown]
  - Back pain [Recovering/Resolving]
  - Renal disorder [Unknown]
  - Glomerular filtration rate abnormal [Unknown]
  - Discomfort [Unknown]
  - Renal failure [Recovering/Resolving]
  - Dysstasia [Unknown]

NARRATIVE: CASE EVENT DATE: 20160505
